FAERS Safety Report 24303290 (Version 1)
Quarter: 2024Q3

REPORT INFORMATION
  Report Type: Spontaneous
  Country: IT (occurrence: IT)
  Receive Date: 20240910
  Receipt Date: 20240910
  Transmission Date: 20241016
  Serious: Yes (Other)
  Sender: BRISTOL MYERS SQUIBB
  Company Number: None

PATIENT
  Age: 34 Year
  Sex: Female
  Weight: 49 kg

DRUGS (1)
  1. LUSPATERCEPT [Suspect]
     Active Substance: LUSPATERCEPT
     Indication: Thalassaemia beta
     Route: 058
     Dates: start: 20240304, end: 20240712

REACTIONS (3)
  - Erythropoiesis abnormal [Recovering/Resolving]
  - Splenomegaly [Recovering/Resolving]
  - Hypersplenism [Recovering/Resolving]

NARRATIVE: CASE EVENT DATE: 20240712
